FAERS Safety Report 4718134-0 (Version None)
Quarter: 2005Q3

REPORT INFORMATION
  Report Type: 
  Country: None (occurrence: None)
  Receive Date: 20050720
  Receipt Date: 20050602
  Transmission Date: 20060218
  Serious: Yes (Other)
  Sender: FDA-Public Use
  Company Number: PHEH2005US06244

PATIENT
  Age: 76 Year
  Sex: Female

DRUGS (13)
  1. AREDIA [Suspect]
     Indication: METASTASES TO BONE
     Dosage: 60 MG Q4WEEKS
     Dates: start: 20030601, end: 20050401
  2. INSULIN [Concomitant]
     Indication: DIABETES MELLITUS
     Dosage: 75/25 44UNITS QD
  3. LANTUS [Concomitant]
     Indication: DIABETES MELLITUS
     Dosage: 44 UNITS QHS
  4. ARANESP [Concomitant]
     Indication: ANAEMIA
     Dosage: 200UNITS QWK
     Dates: start: 20031101
  5. CARTIA /USA/ [Concomitant]
     Indication: HYPERTENSION
     Dosage: 180 MG 2 TABS QD
  6. DIOVAN [Concomitant]
     Indication: HYPERTENSION
     Dosage: QAM
  7. HYDROCHLOROTHIAZIDE [Concomitant]
     Indication: HYPERTENSION
     Dosage: 12.5 MG, QD
  8. PLAVIX [Concomitant]
     Indication: CEREBROVASCULAR ACCIDENT
     Dosage: 75 MG, QD
  9. WARFARIN SODIUM [Concomitant]
     Indication: DEEP VEIN THROMBOSIS
     Dosage: 2 MG, QD
     Dates: start: 20030701
  10. TAMOXIFEN CITRATE [Concomitant]
     Indication: BREAST CANCER
     Dosage: 20 MG, QD
     Dates: start: 20030501
  11. QUININE SULFATE [Concomitant]
     Indication: MUSCLE SPASMS
     Dosage: 325 MG, QD
     Dates: start: 20030701
  12. MULTI-VITAMINS [Concomitant]
     Indication: PROPHYLAXIS
     Dosage: 1 DAILY
  13. CALCIUM GLUCONATE [Concomitant]
     Indication: PROPHYLAXIS
     Dosage: 1 DAILY

REACTIONS (9)
  - ABSCESS ORAL [None]
  - ANAEMIA [None]
  - ASEPTIC NECROSIS BONE [None]
  - DEEP VEIN THROMBOSIS [None]
  - IMPAIRED HEALING [None]
  - INFECTION [None]
  - PURULENT DISCHARGE [None]
  - SWELLING FACE [None]
  - TOOTH EXTRACTION [None]
